FAERS Safety Report 4913372-6 (Version None)
Quarter: 2006Q1

REPORT INFORMATION
  Report Type: 
  Country: None (occurrence: None)
  Receive Date: 20060209
  Receipt Date: 20060207
  Transmission Date: 20060701
  Serious: Yes (Hospitalization)
  Sender: FDA-Public Use
  Company Number: HQWYE689606FEB06

PATIENT

DRUGS (1)
  1. ANCARON (AMIODARONE, TABLET) [Suspect]
     Indication: VENTRICULAR TACHYCARDIA
     Dosage: ORAL
     Route: 048
     Dates: start: 20030901, end: 20051101

REACTIONS (2)
  - CELL MARKER INCREASED [None]
  - INTERSTITIAL LUNG DISEASE [None]
